FAERS Safety Report 10965689 (Version 2)
Quarter: 2015Q2

REPORT INFORMATION
  Report Type: Spontaneous
  Country: US (occurrence: US)
  Receive Date: 20150330
  Receipt Date: 20150511
  Transmission Date: 20150821
  Serious: No
  Sender: FDA-Public Use
  Company Number: US-BRISTOL-MYERS SQUIBB COMPANY-BMS-2015-018154

PATIENT
  Age: 13 Year
  Sex: Male

DRUGS (2)
  1. ABILIFY [Suspect]
     Active Substance: ARIPIPRAZOLE
     Indication: OPPOSITIONAL DEFIANT DISORDER
  2. ABILIFY [Suspect]
     Active Substance: ARIPIPRAZOLE
     Indication: ATTENTION DEFICIT/HYPERACTIVITY DISORDER
     Dosage: 5 MG, UNK
     Route: 065

REACTIONS (3)
  - Fatigue [Unknown]
  - Off label use [Unknown]
  - Irritability [Unknown]
